FAERS Safety Report 8106645-X (Version None)
Quarter: 2012Q1

REPORT INFORMATION
  Report Type: 
  Country: None (occurrence: None)
  Receive Date: 20120202
  Receipt Date: 20120130
  Transmission Date: 20120608
  Serious: No
  Sender: FDA-Public Use
  Company Number: US-BAYER-2012-009768

PATIENT
  Age: 64 Year
  Sex: Male

DRUGS (2)
  1. GADAVIST [Suspect]
     Indication: CENTRAL NERVOUS SYSTEM LESION
  2. GADAVIST [Suspect]
     Indication: NUCLEAR MAGNETIC RESONANCE IMAGING BRAIN
     Dosage: 10 ML, ONCE
     Route: 042
     Dates: start: 20120127

REACTIONS (1)
  - URTICARIA [None]
